FAERS Safety Report 5898693-5 (Version None)
Quarter: 2008Q3

REPORT INFORMATION
  Report Type: 
  Country: None (occurrence: None)
  Receive Date: 20080925
  Receipt Date: 20080416
  Transmission Date: 20090109
  Serious: No
  Sender: FDA-Public Use
  Company Number: A0723173A

PATIENT
  Age: 59 Year
  Sex: Female

DRUGS (8)
  1. WELLBUTRIN XL [Suspect]
     Indication: DEPRESSION
     Dosage: 150MG PER DAY
     Route: 048
     Dates: start: 20080311
  2. ABILIFY [Suspect]
     Indication: DRUG USE FOR UNKNOWN INDICATION
     Route: 065
     Dates: start: 20080311
  3. PROZAC [Concomitant]
  4. BLOOD PRESSURE MEDICATION [Concomitant]
  5. BONIVA [Concomitant]
  6. IRON PILLS [Concomitant]
  7. FENTANYL TRANSDERMAL SYSTEM [Concomitant]
  8. CALCIUM GLUCONATE [Concomitant]

REACTIONS (3)
  - ARTHRALGIA [None]
  - DYSARTHRIA [None]
  - MYALGIA [None]
